FAERS Safety Report 7002166-6 (Version None)
Quarter: 2010Q3

REPORT INFORMATION
  Report Type: 
  Country: None (occurrence: None)
  Receive Date: 20100920
  Receipt Date: 20090818
  Transmission Date: 20110219
  Serious: No
  Sender: FDA-Public Use
  Company Number: US-ASTRAZENECA-2009SE08728

PATIENT
  Sex: Female
  Weight: 83.9 kg

DRUGS (5)
  1. SEROQUEL [Suspect]
     Indication: BIPOLAR DISORDER
     Route: 048
  2. SEROQUEL [Suspect]
     Route: 048
  3. PAXIL [Suspect]
     Route: 048
  4. COREG [Concomitant]
  5. LASIX [Concomitant]

REACTIONS (3)
  - CARDIAC FAILURE [None]
  - MANIA [None]
  - WEIGHT INCREASED [None]
